FAERS Safety Report 8741192 (Version 2)
Quarter: 2017Q2

REPORT INFORMATION
  Report Type: Spontaneous
  Country: US (occurrence: US)
  Receive Date: 20120824
  Receipt Date: 20170423
  Transmission Date: 20170830
  Serious: No
  Sender: FDA-Public Use
  Company Number: US-ASTRAZENECA-2012SE00085

PATIENT
  Age: 27239 Day
  Sex: Female

DRUGS (5)
  1. IPRATROPIUM [Suspect]
     Active Substance: IPRATROPIUM
     Dosage: DAILY
     Route: 065
  2. SYMBICORT [Suspect]
     Active Substance: BUDESONIDE\FORMOTEROL FUMARATE DIHYDRATE
     Dosage: 160/4.5 MCG TWO PUFFS TWICE PER DAY
     Route: 055
  3. ALBUTEROL. [Suspect]
     Active Substance: ALBUTEROL
     Dosage: DAILY
     Route: 065
  4. SYMBICORT [Suspect]
     Active Substance: BUDESONIDE\FORMOTEROL FUMARATE DIHYDRATE
     Dosage: UNKNOWN DOSE, TWO TIMES DAILY
     Route: 055
  5. BRILINTA [Suspect]
     Active Substance: TICAGRELOR
     Dosage: 90.0MG UNKNOWN
     Route: 048

REACTIONS (5)
  - Dyspnoea [Unknown]
  - Sensitivity to weather change [Unknown]
  - Emphysema [Unknown]
  - Tremor [Unknown]
  - Bronchitis [Unknown]
